FAERS Safety Report 10862110 (Version 2)
Quarter: 2015Q1

REPORT INFORMATION
  Report Type: Spontaneous
  Country: US (occurrence: US)
  Receive Date: 20150224
  Receipt Date: 20150325
  Transmission Date: 20150721
  Serious: Yes (Other)
  Sender: FDA-Public Use
  Company Number: US-BANPHARM-20153426

PATIENT
  Age: 74 Year
  Sex: Female
  Weight: 95.25 kg

DRUGS (4)
  1. ALEVE [Suspect]
     Active Substance: NAPROXEN SODIUM
     Dosage: 3 CAPSULES, OVER 2 DAY PERIOD,
     Route: 048
  2. UNKNOWN MEDICATION FOR DIABETES [Concomitant]
  3. UNKNOWN MEDICATION FOR HEART TROUBLE [Concomitant]
  4. UNKNOWN MEDICATION FOR ASTHMA [Concomitant]

REACTIONS (2)
  - Dyspnoea [Recovered/Resolved]
  - Swelling face [Recovered/Resolved]

NARRATIVE: CASE EVENT DATE: 20150210
